FAERS Safety Report 16476006 (Version 1)
Quarter: 2019Q2

REPORT INFORMATION
  Report Type: Other
  Country: US (occurrence: US)
  Receive Date: 20190625
  Receipt Date: 20190625
  Transmission Date: 20190711
  Serious: Yes (Life-Threatening, Other)
  Sender: FDA-Public Use
  Company Number: US-VITRUVIAS THERAPEUTICS-2069573

PATIENT
  Age: 59 Year
  Sex: Male
  Weight: 86 kg

DRUGS (2)
  1. AMINOCAPROIC ACID. [Suspect]
     Active Substance: AMINOCAPROIC ACID
     Route: 042
  2. AMINOCAPROIC (AMINOCAPROIC ACID) [Suspect]
     Active Substance: AMINOCAPROIC ACID
     Route: 040

REACTIONS (1)
  - Pulmonary embolism [Recovered/Resolved]
